FAERS Safety Report 15023178 (Version 1)
Quarter: 2018Q2

REPORT INFORMATION
  Report Type: Spontaneous
  Country: DE (occurrence: DE)
  Receive Date: 20180618
  Receipt Date: 20180618
  Transmission Date: 20180711
  Serious: Yes (Other)
  Sender: FDA-Public Use
  Company Number: DE-ROCHE-2139365

PATIENT
  Age: 71 Year
  Sex: Female

DRUGS (1)
  1. BONDRONAT [Suspect]
     Active Substance: IBANDRONIC ACID
     Indication: OSTEOGENESIS IMPERFECTA
     Route: 065
     Dates: end: 2016

REACTIONS (6)
  - Gastrointestinal disorder [Unknown]
  - Pyrexia [Unknown]
  - Arthralgia [Unknown]
  - Intentional product use issue [Unknown]
  - Off label use [Unknown]
  - Fracture [Unknown]
